FAERS Safety Report 14936765 (Version 1)
Quarter: 2018Q2

REPORT INFORMATION
  Report Type: Spontaneous
  Country: US (occurrence: US)
  Receive Date: 20180525
  Receipt Date: 20180525
  Transmission Date: 20180711
  Serious: No
  Sender: FDA-Public Use
  Company Number: US-TEVA-776800USA

PATIENT
  Sex: Female

DRUGS (1)
  1. AMLODIPINE W/BENAZEPRIL [Suspect]
     Active Substance: AMLODIPINE BESYLATE\BENAZEPRIL HYDROCHLORIDE
     Dosage: AMLODIPINE: 10MG/BENAZEPRIL: 20MG

REACTIONS (1)
  - Drug ineffective [Unknown]
